FAERS Safety Report 16691545 (Version 2)
Quarter: 2019Q4

REPORT INFORMATION
  Report Type: Spontaneous
  Country: US (occurrence: US)
  Receive Date: 20190812
  Receipt Date: 20191014
  Transmission Date: 20200122
  Serious: No
  Sender: FDA-Public Use
  Company Number: US-BRISTOL-MYERS SQUIBB COMPANY-BMS-2019-079041

PATIENT
  Sex: Male
  Weight: 74.39 kg

DRUGS (1)
  1. ELIQUIS [Suspect]
     Active Substance: APIXABAN
     Indication: CEREBROVASCULAR ACCIDENT PROPHYLAXIS
     Dosage: UNK, BID
     Route: 048

REACTIONS (5)
  - Contusion [Recovered/Resolved]
  - Tooth disorder [Recovered/Resolved]
  - Ulcer [Recovered/Resolved]
  - Rash [Recovered/Resolved]
  - Tinea cruris [Recovered/Resolved]
